FAERS Safety Report 7383008-6 (Version None)
Quarter: 2011Q1

REPORT INFORMATION
  Report Type: 
  Country: None (occurrence: None)
  Receive Date: 20110328
  Receipt Date: 20110328
  Transmission Date: 20110831
  Serious: Yes (Other)
  Sender: FDA-Public Use
  Company Number: None

PATIENT
  Age: 16 Year
  Sex: Male
  Weight: 85 kg

DRUGS (2)
  1. ACETYLCYSTEINE [Suspect]
     Indication: OVERDOSE
     Dosage: 1300 MG OVER 1 HOUR IV BOLUS
     Route: 040
     Dates: start: 20110321, end: 20110321
  2. ACETYLCYSTEINE [Suspect]
     Dosage: 4250 MG OVER 4 HOURS IV DRIP
     Route: 041

REACTIONS (4)
  - OXYGEN SATURATION DECREASED [None]
  - TACHYCARDIA [None]
  - DYSPNOEA [None]
  - HYPOTENSION [None]
